FAERS Safety Report 9198040 (Version 2)
Quarter: 2013Q1

REPORT INFORMATION
  Report Type: Report from Study
  Country: US (occurrence: US)
  Receive Date: 20130328
  Receipt Date: 20130328
  Transmission Date: 20140127
  Serious: Yes (Hospitalization, Other)
  Sender: FDA-Public Use
  Company Number: US-ABBOTT-13P-163-1045419-00

PATIENT
  Age: 61 Year
  Sex: Female

DRUGS (19)
  1. HUMIRA [Suspect]
     Indication: RHEUMATOID ARTHRITIS
     Route: 058
     Dates: start: 20121128, end: 20130117
  2. FOLIC ACID [Suspect]
     Indication: ROUTINE HEALTH MAINTENANCE
     Dosage: DAILY
     Route: 048
  3. LIPITOR [Suspect]
     Indication: BLOOD CHOLESTEROL
     Dosage: DAILY
  4. METHOTREXATE [Suspect]
     Indication: RHEUMATOID ARTHRITIS
     Route: 048
  5. UNSPECIFIED DRUG [Suspect]
     Indication: PRODUCT USED FOR UNKNOWN INDICATION
  6. CYMBALTA [Concomitant]
     Indication: DEPRESSION
     Dosage: DAILY
     Route: 048
  7. DEXILANT [Concomitant]
     Indication: DYSPEPSIA
     Dosage: DAILY
     Route: 048
  8. FLEXERIL [Concomitant]
     Indication: MUSCLE SPASMS
     Route: 048
  9. LISINOPRIL [Concomitant]
     Indication: HYPERTENSION
     Dosage: DAILY
     Route: 048
  10. PENTASA [Concomitant]
     Indication: CROHN^S DISEASE
  11. PLAQUENIL [Concomitant]
     Indication: RHEUMATOID ARTHRITIS
     Dosage: DAILY
     Route: 048
  12. RANITIDINE [Concomitant]
     Indication: ABDOMINAL DISCOMFORT
     Dosage: DAILY
  13. VITAMIN D [Concomitant]
     Indication: ROUTINE HEALTH MAINTENANCE
  14. FLORINET [Concomitant]
     Indication: ANGIOPATHY
  15. FLORINET [Concomitant]
     Indication: BLOOD PRESSURE DECREASED
  16. CALCIUM [Concomitant]
     Indication: PRODUCT USED FOR UNKNOWN INDICATION
  17. BABY ASPIRIN [Concomitant]
     Indication: PRODUCT USED FOR UNKNOWN INDICATION
  18. FISH OIL [Concomitant]
     Indication: PRODUCT USED FOR UNKNOWN INDICATION
  19. VICODIN [Concomitant]
     Indication: BACK PAIN

REACTIONS (8)
  - Abdominal mass [Unknown]
  - Hepatic enzyme increased [Unknown]
  - Cholelithiasis [Unknown]
  - Abdominal pain [Unknown]
  - Urostomy complication [Not Recovered/Not Resolved]
  - Procedural site reaction [Not Recovered/Not Resolved]
  - Infection [Not Recovered/Not Resolved]
  - Rash [Not Recovered/Not Resolved]
